FAERS Safety Report 5260759-0 (Version None)
Quarter: 2007Q1

REPORT INFORMATION
  Report Type: 
  Country: None (occurrence: None)
  Receive Date: 20070309
  Receipt Date: 20070227
  Transmission Date: 20070707
  Serious: Yes (Death)
  Sender: FDA-Public Use
  Company Number: US-MERCK-0703USA00399

PATIENT
  Sex: Female

DRUGS (7)
  1. PRIMAXIN [Suspect]
     Route: 065
  2. VORICONAZOLE [Concomitant]
     Route: 065
  3. IDARUBICIN HYDROCHLORIDE [Concomitant]
     Indication: ACUTE MYELOID LEUKAEMIA
     Route: 065
  4. PROCHLORPERAZINE [Concomitant]
     Route: 065
  5. DIPHENHYDRAMINE HYDROCHLORIDE [Concomitant]
     Route: 065
  6. METRONIDAZOLE [Concomitant]
     Route: 065
  7. CIPROFLOXACIN [Concomitant]
     Route: 065

REACTIONS (1)
  - VENTRICULAR FIBRILLATION [None]
